FAERS Safety Report 8800871 (Version 1)
Quarter: 2012Q4

REPORT INFORMATION
  Report Type: 
  Country: JP (occurrence: JP)
  Receive Date: 20120920
  Receipt Date: 20120920
  Transmission Date: 20130627
  Serious: Yes (Other)
  Sender: FDA-Public Use
  Company Number: JP-ROCHE-1124592

PATIENT
  Age: 56 Year
  Sex: Female

DRUGS (14)
  1. DENOSINE [Suspect]
     Indication: PRODUCT USED FOR UNKNOWN INDICATION
     Route: 041
     Dates: start: 2012
  2. DIOVAN [Concomitant]
     Route: 048
  3. ADALAT CR [Concomitant]
     Route: 048
  4. PREDNISOLONE [Concomitant]
     Route: 048
  5. PROGRAF [Concomitant]
     Route: 048
  6. ISCOTIN [Concomitant]
     Route: 048
  7. BAKTAR [Concomitant]
     Route: 048
  8. BAYASPIRIN [Concomitant]
     Route: 065
  9. FOSAMAX [Concomitant]
     Route: 048
  10. ALFAROL [Concomitant]
     Route: 065
  11. LIPITOR [Concomitant]
     Route: 048
  12. FAMOTIDINE [Concomitant]
     Route: 048
  13. LENDORMIN [Concomitant]
     Route: 048
  14. MAGLAX [Concomitant]
     Route: 048

REACTIONS (2)
  - Psychiatric symptom [Recovered/Resolved]
  - Hyponatraemia [Recovered/Resolved]
